FAERS Safety Report 5223914-1 (Version None)
Quarter: 2007Q1

REPORT INFORMATION
  Report Type: 
  Country: None (occurrence: None)
  Receive Date: 20070126
  Receipt Date: 20070110
  Transmission Date: 20070707
  Serious: Yes (Congenital Anomaly)
  Sender: FDA-Public Use
  Company Number: 8014744

PATIENT
  Sex: Female
  Weight: 2.835 kg

DRUGS (4)
  1. LEVETIRACETAM [Suspect]
     Indication: EPILEPSY
     Dosage: 1000 MG TRP
     Route: 064
  2. VALPROATE SODIUM [Suspect]
     Indication: EPILEPSY
     Dosage: 1200 MG TRP
     Route: 064
  3. LAMOTRIGINE [Suspect]
     Indication: EPILEPSY
     Dosage: 200 MG TRP
     Route: 064
  4. CLOBAZAM [Suspect]
     Indication: EPILEPSY
     Dosage: 10 MG TRP
     Route: 064

REACTIONS (3)
  - CONGENITAL ANOMALY [None]
  - DRUG EXPOSURE DURING PREGNANCY [None]
  - SPINA BIFIDA [None]
